FAERS Safety Report 5101842-X (Version None)
Quarter: 2006Q3

REPORT INFORMATION
  Report Type: 
  Country: None (occurrence: None)
  Receive Date: 20060731
  Receipt Date: 20060620
  Transmission Date: 20061208
  Serious: No
  Sender: FDA-Public Use
  Company Number: 2006PV016052

PATIENT
  Age: 66 Year
  Sex: Female
  Weight: 77.1115 kg

DRUGS (4)
  1. BYETTA [Suspect]
     Indication: DIABETES MELLITUS NON-INSULIN-DEPENDENT
     Dosage: 5 MCG; BID; SC
     Route: 058
     Dates: start: 20060515, end: 20060617
  2. LANTUS [Concomitant]
  3. GLYBURIDE [Concomitant]
  4. PRILOSEC [Concomitant]

REACTIONS (9)
  - ANXIETY [None]
  - BLOOD GLUCOSE DECREASED [None]
  - CHEST PAIN [None]
  - HEART RATE INCREASED [None]
  - INFECTION [None]
  - NAUSEA [None]
  - PAIN [None]
  - PYREXIA [None]
  - WEIGHT DECREASED [None]
